FAERS Safety Report 8586082-4 (Version None)
Quarter: 2012Q3

REPORT INFORMATION
  Report Type: 
  Country: None (occurrence: None)
  Receive Date: 20120810
  Receipt Date: 20120802
  Transmission Date: 20120928
  Serious: Yes (Other)
  Sender: FDA-Public Use
  Company Number: AU-ELI_LILLY_AND_COMPANY-AU201208000900

PATIENT
  Sex: Female

DRUGS (1)
  1. FORTEO [Suspect]
     Indication: OSTEOPOROSIS
     Dosage: UNK, UNKNOWN
     Route: 065
     Dates: start: 20111116

REACTIONS (6)
  - EMPHYSEMA [None]
  - DYSPNOEA [None]
  - SKIN FRAGILITY [None]
  - ECCHYMOSIS [None]
  - NASOPHARYNGITIS [None]
  - ABASIA [None]
